FAERS Safety Report 6045210-5 (Version None)
Quarter: 2009Q1

REPORT INFORMATION
  Report Type: 
  Country: None (occurrence: None)
  Receive Date: 20090121
  Receipt Date: 20090112
  Transmission Date: 20090719
  Serious: Yes (Hospitalization)
  Sender: FDA-Public Use
  Company Number: FR-ROCHE-608014

PATIENT
  Age: 16 Year
  Sex: Male

DRUGS (7)
  1. ROACCUTANE [Suspect]
     Indication: ACNE
     Route: 048
     Dates: start: 20080930, end: 20081105
  2. CORTANCYL [Suspect]
     Indication: ACNE
     Route: 048
     Dates: start: 20080930
  3. EFFERALGAN [Suspect]
     Indication: DRUG USE FOR UNKNOWN INDICATION
     Dosage: 1 TABLET.
     Route: 065
     Dates: start: 20081105
  4. CARBOLEVURE [Suspect]
     Indication: DRUG USE FOR UNKNOWN INDICATION
     Dosage: DOSE REPORTED AS 10 TABLETS
     Route: 065
     Dates: start: 20081105
  5. CORYZALIA [Suspect]
     Indication: DRUG USE FOR UNKNOWN INDICATION
     Route: 065
     Dates: start: 20081105
  6. TARDYFERON [Suspect]
     Indication: DRUG USE FOR UNKNOWN INDICATION
     Dosage: DOSE REPORTED AS 2 TABLETS.
     Route: 065
     Dates: start: 20081105
  7. RUBOZINC [Concomitant]
     Indication: ACNE
     Route: 048

REACTIONS (2)
  - DRUG TOXICITY [None]
  - NO ADVERSE EVENT [None]
